FAERS Safety Report 12915956 (Version 2)
Quarter: 2016Q4

REPORT INFORMATION
  Report Type: Spontaneous
  Country: US (occurrence: US)
  Receive Date: 20161104
  Receipt Date: 20161114
  Transmission Date: 20170207
  Serious: No
  Sender: FDA-Public Use
  Company Number: US-B.I. PHARMACEUTICALS,INC./RIDGEFIELD-2016-BI-070555

PATIENT
  Age: 75 Year
  Sex: Female

DRUGS (1)
  1. MOBIC [Suspect]
     Active Substance: MELOXICAM
     Indication: INFLAMMATION
     Route: 048
     Dates: start: 20161008

REACTIONS (1)
  - Breast tenderness [Unknown]

NARRATIVE: CASE EVENT DATE: 20161008
